FAERS Safety Report 13213096 (Version 1)
Quarter: 2017Q1

REPORT INFORMATION
  Report Type: Report from Study
  Country: BR (occurrence: BR)
  Receive Date: 20170210
  Receipt Date: 20170210
  Transmission Date: 20170428
  Serious: Yes (Death)
  Sender: FDA-Public Use
  Company Number: PHHY2017BR021227

PATIENT
  Sex: Female

DRUGS (1)
  1. EXELON PATCH [Suspect]
     Active Substance: RIVASTIGMINE
     Indication: DEMENTIA ALZHEIMER^S TYPE
     Dosage: 0.5 DF, QD PATCH 15 (CM2) (13.3 MG)
     Route: 062

REACTIONS (3)
  - Wrong technique in product usage process [Unknown]
  - Cardiac arrest [Fatal]
  - Cerebrovascular accident [Fatal]
